FAERS Safety Report 7583126-3 (Version None)
Quarter: 2011Q2

REPORT INFORMATION
  Report Type: 
  Country: None (occurrence: None)
  Receive Date: 20110630
  Receipt Date: 20100629
  Transmission Date: 20111010
  Serious: No
  Sender: FDA-Public Use
  Company Number: BR-ASTRAZENECA-2010SE30619

PATIENT
  Age: 95 Year
  Sex: Male

DRUGS (1)
  1. ZOLADEX [Suspect]
     Indication: PROSTATE CANCER
     Route: 058
     Dates: start: 20030101

REACTIONS (2)
  - DRUG DOSE OMISSION [None]
  - INFLUENZA [None]
